FAERS Safety Report 19454947 (Version 2)
Quarter: 2021Q4

REPORT INFORMATION
  Report Type: Spontaneous
  Country: CA (occurrence: CA)
  Receive Date: 20210623
  Receipt Date: 20211129
  Transmission Date: 20220303
  Serious: Yes (Hospitalization)
  Sender: FDA-Public Use
  Company Number: CA-ANIPHARMA-2021-CA-000903

PATIENT
  Age: 77 Year
  Sex: Female

DRUGS (5)
  1. CANDESARTAN CILEXETIL [Suspect]
     Active Substance: CANDESARTAN CILEXETIL
     Indication: Hypertension
     Dosage: UNKNOWN DOSE DAILY
     Route: 048
     Dates: start: 202006, end: 202012
  2. DILTIAZEM [Concomitant]
     Active Substance: DILTIAZEM
     Indication: Product used for unknown indication
     Route: 065
  3. ELIQUIS [Concomitant]
     Active Substance: APIXABAN
     Indication: Product used for unknown indication
     Route: 065
  4. HYDROXYUREA [Concomitant]
     Active Substance: HYDROXYUREA
     Indication: Product used for unknown indication
     Route: 065
  5. HOMEOPATHIC HERBAL NOS [Concomitant]
     Indication: Product used for unknown indication
     Route: 065

REACTIONS (4)
  - Fall [Unknown]
  - Medication error [Unknown]
  - Syncope [Unknown]
  - Therapy change [Unknown]

NARRATIVE: CASE EVENT DATE: 20200701
